FAERS Safety Report 14807634 (Version 1)
Quarter: 2018Q2

REPORT INFORMATION
  Report Type: Report from Study
  Country: US (occurrence: US)
  Receive Date: 20180425
  Receipt Date: 20180425
  Transmission Date: 20180711
  Serious: Yes (Death)
  Sender: FDA-Public Use
  Company Number: US-ASTRAZENECA-2017SF21724

PATIENT
  Age: 23108 Day
  Sex: Female

DRUGS (2)
  1. TAGRISSO [Suspect]
     Active Substance: OSIMERTINIB
     Route: 048
     Dates: start: 20171101
  2. TAGRISSO [Suspect]
     Active Substance: OSIMERTINIB
     Route: 048
     Dates: start: 20171026, end: 20171027

REACTIONS (4)
  - Urticaria [Unknown]
  - Pruritus [Unknown]
  - Death [Fatal]
  - Burning sensation [Unknown]

NARRATIVE: CASE EVENT DATE: 20180314
